FAERS Safety Report 15207127 (Version 1)
Quarter: 2018Q3

REPORT INFORMATION
  Report Type: Spontaneous
  Country: US (occurrence: US)
  Receive Date: 20180727
  Receipt Date: 20180727
  Transmission Date: 20181010
  Serious: No
  Sender: FDA-Public Use
  Company Number: US-JNJFOC-20180716331

PATIENT
  Sex: Male

DRUGS (18)
  1. CLOPIDOGREL [Concomitant]
     Active Substance: CLOPIDOGREL BISULFATE
     Route: 048
  2. KEPPRA [Concomitant]
     Active Substance: LEVETIRACETAM
     Indication: SEIZURE
     Route: 048
  3. XARELTO [Suspect]
     Active Substance: RIVAROXABAN
     Indication: STENT PLACEMENT
     Route: 048
     Dates: start: 2002
  4. TAMSULOSIN [Concomitant]
     Active Substance: TAMSULOSIN
     Route: 048
  5. ASPIRIN. [Concomitant]
     Active Substance: ASPIRIN
     Route: 048
  6. NITROGLYCERIN. [Concomitant]
     Active Substance: NITROGLYCERIN
     Indication: CHEST PAIN
     Dosage: HIGH DOSE
     Route: 048
  7. VIMPAT [Concomitant]
     Active Substance: LACOSAMIDE
     Indication: SEIZURE
     Route: 048
  8. PRAVASTATIN. [Concomitant]
     Active Substance: PRAVASTATIN
     Indication: BLOOD CHOLESTEROL ABNORMAL
     Route: 048
  9. LISINOPRIL. [Concomitant]
     Active Substance: LISINOPRIL
     Route: 048
  10. RANITIDINE. [Concomitant]
     Active Substance: RANITIDINE
     Route: 048
  11. OXYCODONE [Concomitant]
     Active Substance: OXYCODONE
     Indication: PAIN
     Dosage: HIGH DOSE AND LOW DOSE  AS NEEDED
     Route: 065
  12. AMLODIPINE [Concomitant]
     Active Substance: AMLODIPINE BESYLATE
     Route: 048
  13. NITROGLYCERIN. [Concomitant]
     Active Substance: NITROGLYCERIN
     Indication: CHEST PAIN
     Dosage: LOW DOSE
     Route: 048
  14. VITAMIN B12 [Concomitant]
     Active Substance: CYANOCOBALAMIN
     Indication: VITAMIN SUPPLEMENTATION
     Dosage: HIGH DOSE AND LOW DOSE  AS NEEDED
     Route: 065
  15. XARELTO [Suspect]
     Active Substance: RIVAROXABAN
     Indication: MYOCARDIAL INFARCTION
     Route: 048
     Dates: start: 2002
  16. METOPROLOL. [Concomitant]
     Active Substance: METOPROLOL
     Route: 048
  17. AGGRENOX [Concomitant]
     Active Substance: ASPIRIN\DIPYRIDAMOLE
     Dosage: 50?200
     Route: 048
  18. OXYCODONE [Concomitant]
     Active Substance: OXYCODONE
     Indication: INTERVERTEBRAL DISC PROTRUSION
     Dosage: HIGH DOSE AND LOW DOSE  AS NEEDED
     Route: 065

REACTIONS (3)
  - Skin exfoliation [Recovered/Resolved]
  - Product use in unapproved indication [Unknown]
  - Off label use [Unknown]

NARRATIVE: CASE EVENT DATE: 2002
